FAERS Safety Report 8192009-X (Version None)
Quarter: 2012Q1

REPORT INFORMATION
  Report Type: 
  Country: None (occurrence: None)
  Receive Date: 20120307
  Receipt Date: 20120305
  Transmission Date: 20120608
  Serious: Yes (Hospitalization)
  Sender: FDA-Public Use
  Company Number: PHFR2010IE06022

PATIENT
  Sex: Female

DRUGS (8)
  1. COMBIVENT [Concomitant]
     Dosage: 2.5 MG/DAY
  2. VALPROATE SODIUM [Concomitant]
     Dosage: 500 MG/DAY
     Route: 048
  3. SERETIDE ^ALLEN + HANBURYS LTD^ [Concomitant]
  4. VITAMIN E [Concomitant]
     Dosage: 400 IU/DAY
     Route: 048
  5. LANSOPRAZOLE [Concomitant]
     Dosage: 30 MG/DAY
     Route: 048
  6. AMOXICILLIN AND CLAVULANATE POTASSIUM [Concomitant]
     Dosage: 625 MG, TID
     Route: 048
  7. DULOXETIME HYDROCHLORIDE [Concomitant]
     Dosage: 60 MG/DAY
     Route: 048
  8. CLOZARIL [Suspect]
     Indication: SCHIZOPHRENIA
     Dosage: 375 MG/DAY
     Route: 048
     Dates: start: 20091126

REACTIONS (8)
  - HYPERPYREXIA [None]
  - RESPIRATORY FAILURE [None]
  - OXYGEN SATURATION DECREASED [None]
  - WHITE BLOOD CELL COUNT INCREASED [None]
  - CHRONIC OBSTRUCTIVE PULMONARY DISEASE [None]
  - INFLUENZA LIKE ILLNESS [None]
  - EOSINOPHIL COUNT INCREASED [None]
  - LOWER RESPIRATORY TRACT INFECTION [None]
